FAERS Safety Report 8538001-4 (Version None)
Quarter: 2012Q3

REPORT INFORMATION
  Report Type: 
  Country: None (occurrence: None)
  Receive Date: 20120725
  Receipt Date: 20120719
  Transmission Date: 20120928
  Serious: No
  Sender: FDA-Public Use
  Company Number: US-PFIZER INC-2011243271

PATIENT
  Sex: Female
  Weight: 76.64 kg

DRUGS (6)
  1. CHANTIX [Suspect]
     Dosage: UNK
     Route: 048
     Dates: start: 20110101, end: 20111101
  2. LORTAB [Concomitant]
     Indication: ARTHRITIS
     Dosage: UNK, 3X/DAY
  3. KLONOPIN [Concomitant]
     Indication: PANIC ATTACK
  4. CHANTIX [Suspect]
     Indication: SMOKING CESSATION THERAPY
     Dosage: 0.5 MG, DAILY
     Route: 048
     Dates: start: 20110901, end: 20110101
  5. KLONOPIN [Concomitant]
     Indication: ANXIETY
     Dosage: UNK, 3X/DAY
     Route: 048
  6. ZETAMAX [Concomitant]
     Indication: HEADACHE
     Dosage: UNK

REACTIONS (12)
  - DIARRHOEA [None]
  - ABNORMAL DREAMS [None]
  - ABDOMINAL PAIN UPPER [None]
  - CONSTIPATION [None]
  - DEPRESSED MOOD [None]
  - INSOMNIA [None]
  - NERVOUSNESS [None]
  - WEIGHT DECREASED [None]
  - PRURITUS [None]
  - MOOD ALTERED [None]
  - CRYING [None]
  - WEIGHT INCREASED [None]
